FAERS Safety Report 14398643 (Version 1)
Quarter: 2018Q1

REPORT INFORMATION
  Report Type: Report from Study
  Country: TW (occurrence: TW)
  Receive Date: 20180117
  Receipt Date: 20180117
  Transmission Date: 20180509
  Serious: Yes (Other)
  Sender: FDA-Public Use
  Company Number: TW-CIPLA LTD.-2018TW00617

PATIENT

DRUGS (3)
  1. IRINOTECAN [Suspect]
     Active Substance: IRINOTECAN
     Indication: NEOPLASM
     Dosage: 80 MG/M2, OVER 90 MIN ON DAY 1, EVERY 3 WEEKS
     Route: 042
  2. LEUCOVORIN. [Suspect]
     Active Substance: LEUCOVORIN
     Indication: NEOPLASM
     Dosage: 200 MG/M2, ON DAY 1 AND 8 EVERY THREE WEEKS
     Route: 042
  3. FLUOROURACIL. [Suspect]
     Active Substance: FLUOROURACIL
     Indication: NEOPLASM
     Dosage: 2000 MG/M2, DAY 1 AND 8, EVERY 3 WEEKS
     Route: 042

REACTIONS (1)
  - Malignant neoplasm progression [Unknown]
